FAERS Safety Report 17916132 (Version 1)
Quarter: 2020Q2

REPORT INFORMATION
  Report Type: Spontaneous
  Country: DE (occurrence: DE)
  Receive Date: 20200619
  Receipt Date: 20200619
  Transmission Date: 20200714
  Serious: Yes (Hospitalization)
  Sender: FDA-Public Use
  Company Number: DE-TEVA-2020-DE-1789079

PATIENT
  Age: 70 Year
  Sex: Male

DRUGS (12)
  1. OMEPRAZOL [Concomitant]
     Active Substance: OMEPRAZOLE
     Dosage: 40 MILLIGRAM DAILY; 1-0-0-0
  2. RAMIPRIL. [Concomitant]
     Active Substance: RAMIPRIL
     Dosage: 5 MILLIGRAM DAILY; 1-0-0-0
  3. METOPROLOL. [Concomitant]
     Active Substance: METOPROLOL
     Dosage: 200 MILLIGRAM DAILY; 1-0-1-0
  4. HUMALOG 100 E/ML INJEKTIONSLOESUNG [Concomitant]
     Dosage: NK MG, ACCORDING TO THE SCHEME
  5. SIMVASTATIN. [Concomitant]
     Active Substance: SIMVASTATIN
     Dosage: 20 MILLIGRAM DAILY;  0-0-1-0
  6. ACETYLSALICYLIC ACID [Concomitant]
     Active Substance: ASPIRIN
     Dosage: 100 MILLIGRAM DAILY;  0-1-0-0
  7. IBUPROFEN. [Concomitant]
     Active Substance: IBUPROFEN
     Dosage: NK MG, IF NECESSARY
  8. LEVEMIR [Concomitant]
     Active Substance: INSULIN DETEMIR
     Dosage: NK MG, ACCORDING TO THE SCHEME
  9. ULTIBRO [Suspect]
     Active Substance: GLYCOPYRRONIUM\INDACATEROL
     Dosage: 1 DOSAGE FORMS DAILY; ?NK MG, 1-0-0-0, MDI
     Route: 055
  10. FUROSEMID [Concomitant]
     Active Substance: FUROSEMIDE
     Dosage: 40 MILLIGRAM DAILY; 1-0-0-0
  11. SALBUTAMOL [Suspect]
     Active Substance: ALBUTEROL
     Dosage: NK MG, 4X
  12. VICTOZA [Concomitant]
     Active Substance: LIRAGLUTIDE
     Dosage: 6 MG, NK

REACTIONS (5)
  - Dizziness [Recovering/Resolving]
  - Cough [Recovering/Resolving]
  - Tachycardia [Recovering/Resolving]
  - Nausea [Recovering/Resolving]
  - Dyspnoea [Recovering/Resolving]

NARRATIVE: CASE EVENT DATE: 20190131
